FAERS Safety Report 5269847-6 (Version None)
Quarter: 2007Q1

REPORT INFORMATION
  Report Type: 
  Country: None (occurrence: None)
  Receive Date: 20070320
  Receipt Date: 20070313
  Transmission Date: 20070707
  Serious: Yes (Hospitalization)
  Sender: FDA-Public Use
  Company Number: US-GLAXOSMITHKLINE-A0643294A

PATIENT
  Age: 65 Year
  Sex: Female
  Weight: 78 kg

DRUGS (2)
  1. LAPATINIB [Suspect]
     Dosage: 1250MG PER DAY
     Route: 048
     Dates: start: 20070307
  2. CAPECITABINE [Suspect]
     Dosage: 3800MGM2 PER DAY
     Route: 048
     Dates: start: 20070307

REACTIONS (2)
  - DEHYDRATION [None]
  - DIARRHOEA [None]
